FAERS Safety Report 19802578 (Version 1)
Quarter: 2021Q3

REPORT INFORMATION
  Report Type: Spontaneous
  Country: US (occurrence: US)
  Receive Date: 20210908
  Receipt Date: 20210908
  Transmission Date: 20211014
  Serious: Yes (Other)
  Sender: FDA-Public Use
  Company Number: US-NOVOPROD-843860

PATIENT
  Age: 30 Year
  Sex: Female

DRUGS (1)
  1. OZEMPIC [Suspect]
     Active Substance: SEMAGLUTIDE
     Indication: INSULIN RESISTANCE
     Dosage: 1 MG, QW
     Route: 058
     Dates: start: 2021

REACTIONS (7)
  - Multiple fractures [Unknown]
  - Toothache [Unknown]
  - Fatigue [Unknown]
  - Vomiting [Unknown]
  - Eye pain [Unknown]
  - Nausea [Unknown]
  - Oral pain [Unknown]
